FAERS Safety Report 5945134-5 (Version None)
Quarter: 2008Q4

REPORT INFORMATION
  Report Type: 
  Country: None (occurrence: None)
  Receive Date: 20081107
  Receipt Date: 20081105
  Transmission Date: 20090506
  Serious: Yes (Other)
  Sender: FDA-Public Use
  Company Number: A0755007A

PATIENT
  Age: 57 Year
  Sex: Male

DRUGS (2)
  1. ADVAIR DISKUS 100/50 [Suspect]
     Indication: CHRONIC OBSTRUCTIVE PULMONARY DISEASE
     Dosage: 1PUFF PER DAY
     Route: 055
     Dates: start: 20080101, end: 20080101
  2. MEDICATION FOR HIGH BLOOD PRESSURE [Concomitant]

REACTIONS (14)
  - ANXIETY [None]
  - CANDIDIASIS [None]
  - DEPRESSION [None]
  - DYSPHONIA [None]
  - HYPOTENSION [None]
  - INSOMNIA [None]
  - LOSS OF CONSCIOUSNESS [None]
  - PANIC ATTACK [None]
  - PHARYNGEAL ERYTHEMA [None]
  - PROSTATE INFECTION [None]
  - SPEECH DISORDER [None]
  - STRESS [None]
  - TONGUE COATED [None]
  - VOCAL CORD DISORDER [None]
